FAERS Safety Report 5240038-8 (Version None)
Quarter: 2007Q1

REPORT INFORMATION
  Report Type: 
  Country: None (occurrence: None)
  Receive Date: 20070216
  Receipt Date: 20070206
  Transmission Date: 20070707
  Serious: Yes (Hospitalization)
  Sender: FDA-Public Use
  Company Number: FR-ABBOTT-07P-056-0358602-00

PATIENT
  Age: 35 Year
  Sex: Female

DRUGS (9)
  1. NORVIR [Suspect]
     Indication: DRUG USE FOR UNKNOWN INDICATION
     Route: 048
     Dates: start: 20070106
  2. NORVIR [Suspect]
     Route: 048
     Dates: start: 20060101, end: 20061220
  3. FOSAMPRENAVIR [Suspect]
     Indication: DRUG USE FOR UNKNOWN INDICATION
     Route: 048
     Dates: start: 20070106
  4. FOSAMPRENAVIR [Suspect]
     Route: 048
     Dates: start: 20060101, end: 20061220
  5. ABACAVIR/LAMIVUDINE [Suspect]
     Indication: DRUG USE FOR UNKNOWN INDICATION
     Route: 048
     Dates: start: 20070106
  6. ABACAVIR/LAMIVUDINE [Suspect]
     Route: 048
     Dates: start: 20060101, end: 20061220
  7. BACTRIM [Concomitant]
     Indication: DRUG USE FOR UNKNOWN INDICATION
     Route: 048
     Dates: end: 20061212
  8. IBUPROFEN [Concomitant]
     Indication: DRUG USE FOR UNKNOWN INDICATION
     Route: 048
     Dates: end: 20061212
  9. FLUCONAZOLE [Concomitant]
     Indication: DRUG USE FOR UNKNOWN INDICATION

REACTIONS (11)
  - BLOOD PRESSURE DECREASED [None]
  - CHEILITIS [None]
  - CHEST DISCOMFORT [None]
  - CONJUNCTIVITIS [None]
  - DRUG ERUPTION [None]
  - GASTROINTESTINAL DISORDER [None]
  - PYREXIA [None]
  - RASH ERYTHEMATOUS [None]
  - SKIN EXFOLIATION [None]
  - VULVAL DISORDER [None]
  - VULVITIS [None]
